FAERS Safety Report 20129215 (Version 1)
Quarter: 2021Q4

REPORT INFORMATION
  Report Type: Spontaneous
  Country: CA (occurrence: CA)
  Receive Date: 20211130
  Receipt Date: 20211130
  Transmission Date: 20220304
  Serious: Yes (Other)
  Sender: FDA-Public Use
  Company Number: CA-SA-SAC20211123001507

PATIENT
  Sex: Female
  Weight: 83 kg

DRUGS (15)
  1. LEFLUNOMIDE [Suspect]
     Active Substance: LEFLUNOMIDE
     Indication: Product used for unknown indication
     Dosage: 10 MG, QD
     Route: 065
  2. METHOTREXATE [Suspect]
     Active Substance: METHOTREXATE
     Indication: Product used for unknown indication
     Dosage: 20 MG, QW
     Route: 058
  3. METHOTREXATE [Suspect]
     Active Substance: METHOTREXATE
     Indication: Product used for unknown indication
     Dosage: UNK
     Route: 058
  4. HUMIRA [Suspect]
     Active Substance: ADALIMUMAB
     Indication: Product used for unknown indication
     Dosage: 40 MG, QW
     Route: 058
  5. ALIGN [Concomitant]
     Active Substance: BIFIDOBACTERIUM LONGUM SUBSP. INFANTIS
     Indication: Product used for unknown indication
     Dosage: UNK UNK, QD
  6. BETAMETHASONE DIPROPIONATE;SALICYLIC ACID [Concomitant]
     Indication: Product used for unknown indication
     Dosage: 0.1 %, PRN
  7. CELEBREX [Concomitant]
     Active Substance: CELECOXIB
     Indication: Product used for unknown indication
     Dosage: 100 MG, BID
  8. CITALOPRAM HYDROBROMIDE [Concomitant]
     Active Substance: CITALOPRAM HYDROBROMIDE
     Indication: Product used for unknown indication
     Dosage: 30 MG, QD
  9. COBAMAMIDE [Concomitant]
     Active Substance: COBAMAMIDE
     Indication: Product used for unknown indication
     Dosage: 2500 UG, QD
     Route: 060
  10. FOLIC ACID [Concomitant]
     Active Substance: FOLIC ACID
     Indication: Product used for unknown indication
     Dosage: UNK
  11. IMOVANE [Concomitant]
     Active Substance: ZOPICLONE
     Indication: Product used for unknown indication
     Dosage: 7.5 MG, QD
  12. METHYLCOBALAMIN [Concomitant]
     Active Substance: METHYLCOBALAMIN
     Indication: Product used for unknown indication
     Dosage: UNK
  13. PANTOPRAZOLE SODIUM [Concomitant]
     Active Substance: PANTOPRAZOLE SODIUM
     Indication: Product used for unknown indication
     Dosage: 40 MG, QD
     Route: 048
  14. TYLENOL 8HR [Concomitant]
     Active Substance: ACETAMINOPHEN
     Indication: Product used for unknown indication
     Dosage: UNK UNK, PRN
  15. VITAMIN D NOS [Concomitant]
     Active Substance: VITAMIN D NOS
     Indication: Product used for unknown indication
     Dosage: 2000 IU, QD

REACTIONS (17)
  - Arthralgia [Unknown]
  - Blood cholesterol increased [Unknown]
  - Carpal tunnel syndrome [Unknown]
  - Depression [Unknown]
  - Dyshidrotic eczema [Unknown]
  - Dyslipidaemia [Unknown]
  - Fibromyalgia [Unknown]
  - Hepatic enzyme increased [Unknown]
  - Joint swelling [Unknown]
  - Physical examination of joints abnormal [Unknown]
  - Rash pruritic [Unknown]
  - Anti-cyclic citrullinated peptide antibody positive [Unknown]
  - Blood cholesterol increased [Unknown]
  - Mammoplasty [Unknown]
  - Urinary bladder suspension [Unknown]
  - Drug ineffective [Unknown]
  - Off label use [Unknown]
